FAERS Safety Report 8517621-7 (Version None)
Quarter: 2012Q3

REPORT INFORMATION
  Report Type: 
  Country: None (occurrence: None)
  Receive Date: 20120718
  Receipt Date: 20101111
  Transmission Date: 20120928
  Serious: Yes (Death)
  Sender: FDA-Public Use
  Company Number: US-ROCHE-1088021

PATIENT
  Sex: Female

DRUGS (3)
  1. LUCENTIS [Suspect]
     Indication: AGE-RELATED MACULAR DEGENERATION
     Route: 050
     Dates: start: 20100629, end: 20100729
  2. CILOXAN [Concomitant]
     Dosage: 0.3PERCENTAGE
     Dates: start: 20100521
  3. ARTIFICIAL TEARS [Concomitant]
     Dates: start: 20080111

REACTIONS (1)
  - DEATH [None]
